FAERS Safety Report 4414995-3 (Version None)
Quarter: 2004Q3

REPORT INFORMATION
  Report Type: 
  Country: None (occurrence: None)
  Receive Date: 20040723
  Receipt Date: 20040707
  Transmission Date: 20050211
  Serious: Yes (Other)
  Sender: FDA-Public Use
  Company Number: 601280

PATIENT
  Age: 51 Year
  Sex: Male

DRUGS (1)
  1. ALBUMIN (HUMAN) [Suspect]
     Dosage: 100 ML;PRN
     Dates: start: 19881028, end: 19881028

REACTIONS (1)
  - HEPATITIS C VIRUS [None]
